FAERS Safety Report 15701573 (Version 3)
Quarter: 2019Q1

REPORT INFORMATION
  Report Type: Report from Study
  Country: US (occurrence: US)
  Receive Date: 20181208
  Receipt Date: 20190321
  Transmission Date: 20190417
  Serious: Yes (Hospitalization, Other)
  Sender: FDA-Public Use
  Company Number: US-TAKEDA-2018TUS034645

PATIENT
  Age: 56 Year
  Sex: Female

DRUGS (1)
  1. VEDOLIZUMAB [Suspect]
     Active Substance: VEDOLIZUMAB
     Indication: CROHN^S DISEASE
     Dosage: 300 MILLIGRAM
     Route: 042
     Dates: start: 20181001

REACTIONS (21)
  - Rash [Unknown]
  - Metabolic function test abnormal [Unknown]
  - Loss of consciousness [Unknown]
  - Diverticulitis [Unknown]
  - Crohn^s disease [Recovered/Resolved]
  - Vomiting [Recovered/Resolved]
  - Night sweats [Not Recovered/Not Resolved]
  - Influenza like illness [Not Recovered/Not Resolved]
  - Blood pressure decreased [Unknown]
  - Colitis ischaemic [Unknown]
  - Haemoglobin decreased [Unknown]
  - Vision blurred [Unknown]
  - Sepsis [Unknown]
  - Abdominal pain [Recovered/Resolved]
  - Dehydration [Recovered/Resolved]
  - White blood cell count decreased [Unknown]
  - Diarrhoea [Recovered/Resolved]
  - Anal incontinence [Recovered/Resolved]
  - Swelling [Unknown]
  - Dyspnoea [Not Recovered/Not Resolved]
  - Arthralgia [Unknown]

NARRATIVE: CASE EVENT DATE: 201811
